FAERS Safety Report 23667926 (Version 2)
Quarter: 2024Q2

REPORT INFORMATION
  Report Type: Spontaneous
  Country: US (occurrence: None)
  Receive Date: 20240325
  Receipt Date: 20240520
  Transmission Date: 20240716
  Serious: No
  Sender: FDA-Public Use
  Company Number: 2024A055226

PATIENT
  Sex: Female

DRUGS (1)
  1. SYMBICORT [Suspect]
     Active Substance: BUDESONIDE\FORMOTEROL FUMARATE DIHYDRATE
     Indication: Asthma
     Dosage: UNKNOWN UNKNOWN
     Route: 055

REACTIONS (17)
  - Malaise [Unknown]
  - Illness [Unknown]
  - Respiratory disorder [Unknown]
  - General physical health deterioration [Unknown]
  - Pharyngitis streptococcal [Unknown]
  - Depressed mood [Unknown]
  - Cough [Unknown]
  - Off label use [Unknown]
  - Wrong technique in device usage process [Unknown]
  - Product dose omission issue [Unknown]
  - Product use issue [Unknown]
  - Product use issue [Unknown]
  - Device use issue [Unknown]
  - Product dose omission issue [Unknown]
  - Product use issue [Unknown]
  - Condition aggravated [Unknown]
  - Device delivery system issue [Unknown]
